FAERS Safety Report 21249389 (Version 1)
Quarter: 2022Q3

REPORT INFORMATION
  Report Type: Spontaneous
  Country: GB (occurrence: GB)
  Receive Date: 20220824
  Receipt Date: 20220824
  Transmission Date: 20221027
  Serious: Yes (Death, Life-Threatening, Disabling, Other)
  Sender: FDA-Public Use
  Company Number: GB-MHRA-MED-202208142314040700-CYKTV

PATIENT
  Sex: Male

DRUGS (3)
  1. CIPROFLOXACIN [Suspect]
     Active Substance: CIPROFLOXACIN
     Indication: Abdominal sepsis
     Dosage: UNK
     Route: 064
  2. METRONIDAZOLE [Concomitant]
     Active Substance: METRONIDAZOLE
     Indication: Abdominal sepsis
     Dosage: UNK
     Route: 064
  3. TEICOPLANIN [Concomitant]
     Active Substance: TEICOPLANIN
     Indication: Abdominal sepsis
     Dosage: UNK
     Route: 064

REACTIONS (2)
  - Foetal cardiac arrest [Fatal]
  - Foetal exposure during pregnancy [None]
